FAERS Safety Report 15947770 (Version 1)
Quarter: 2019Q1

REPORT INFORMATION
  Report Type: Other
  Country: ES (occurrence: ES)
  Receive Date: 20190212
  Receipt Date: 20190212
  Transmission Date: 20190417
  Serious: Yes (Life-Threatening, Hospitalization)
  Sender: FDA-Public Use
  Company Number: ES-ASTELLAS-2019US005059

PATIENT
  Age: 48 Year
  Sex: Male
  Weight: 46 kg

DRUGS (1)
  1. TACROLIMUS. [Suspect]
     Active Substance: TACROLIMUS
     Indication: CORD BLOOD TRANSPLANT THERAPY
     Dosage: 0.8 MG(CONTINUOUS INFUSION), ONCE DAILY
     Route: 042
     Dates: start: 20181229, end: 20190103

REACTIONS (2)
  - Product use in unapproved indication [Unknown]
  - Thrombotic microangiopathy [Recovering/Resolving]

NARRATIVE: CASE EVENT DATE: 20181229
